FAERS Safety Report 10642035 (Version 4)
Quarter: 2015Q1

REPORT INFORMATION
  Report Type: Spontaneous
  Country: ZA (occurrence: ZA)
  Receive Date: 20141209
  Receipt Date: 20150316
  Transmission Date: 20150720
  Serious: Yes (Hospitalization, Other)
  Sender: FDA-Public Use
  Company Number: ZA-ABBVIE-14K-143-1317903-00

PATIENT
  Age: 28 Year
  Sex: Male

DRUGS (5)
  1. CALCIUM BICARBONATE [Concomitant]
     Indication: RENAL IMPAIRMENT
     Route: 048
  2. HUMIRA [Suspect]
     Active Substance: ADALIMUMAB
     Indication: CROHN^S DISEASE
     Route: 058
  3. SIMVASTATIN. [Concomitant]
     Active Substance: SIMVASTATIN
     Indication: BLOOD CHOLESTEROL INCREASED
     Route: 048
     Dates: start: 201405
  4. ONE ALPHA [Concomitant]
     Active Substance: ALFACALCIDOL
     Indication: VITAMIN D DEFICIENCY
     Route: 048
     Dates: start: 201405
  5. EPREX [Concomitant]
     Active Substance: ERYTHROPOIETIN
     Indication: NEPHROGENIC ANAEMIA
     Route: 058

REACTIONS (19)
  - Feeling abnormal [Unknown]
  - Blood pressure increased [Not Recovered/Not Resolved]
  - Nausea [Unknown]
  - Red blood cell count decreased [Unknown]
  - Renal failure [Not Recovered/Not Resolved]
  - Hypotension [Unknown]
  - Nerve injury [Unknown]
  - Dialysis disequilibrium syndrome [Unknown]
  - Burning sensation [Unknown]
  - Insomnia [Unknown]
  - Contusion [Not Recovered/Not Resolved]
  - Haemoglobin decreased [Recovered/Resolved]
  - Paraesthesia [Unknown]
  - Bone marrow failure [Unknown]
  - Brain oedema [Unknown]
  - Blood osmolarity abnormal [Unknown]
  - Neuropathy peripheral [Unknown]
  - Platelet count decreased [Not Recovered/Not Resolved]
  - Migraine [Not Recovered/Not Resolved]

NARRATIVE: CASE EVENT DATE: 201410
